FAERS Safety Report 5096994-4 (Version None)
Quarter: 2006Q3

REPORT INFORMATION
  Report Type: 
  Country: None (occurrence: None)
  Receive Date: 20060831
  Receipt Date: 20060831
  Transmission Date: 20061208
  Serious: Yes (Hospitalization)
  Sender: FDA-Public Use
  Company Number: None

PATIENT
  Age: 72 Year
  Sex: Male
  Weight: 87.9 kg

DRUGS (6)
  1. SODIUM PHOSPHATES [Suspect]
     Indication: COLONOSCOPY
     Dosage: PO        ( ONE TIME)
     Route: 048
     Dates: start: 20060803, end: 20060803
  2. HYDROCHLOROTHIAZIDE [Concomitant]
  3. LISINOPRIL [Concomitant]
  4. METOPROLOL TARTRATE [Concomitant]
  5. LEVOTHYROXINE SODIUM [Concomitant]
  6. ALEVE (CAPLET) [Concomitant]

REACTIONS (12)
  - ABDOMINAL DISCOMFORT [None]
  - BLOOD PRESSURE SYSTOLIC INCREASED [None]
  - DIZZINESS [None]
  - HAEMODIALYSIS [None]
  - HYPERPHOSPHATAEMIA [None]
  - MALAISE [None]
  - MYOSITIS [None]
  - NAUSEA [None]
  - NEPHROPATHY [None]
  - RENAL FAILURE ACUTE [None]
  - RENAL FAILURE CHRONIC [None]
  - RENAL TUBULAR NECROSIS [None]
